FAERS Safety Report 9494118 (Version 1)
Quarter: 2013Q3

REPORT INFORMATION
  Report Type: Spontaneous
  Country: GB (occurrence: None)
  Receive Date: 20130827
  Receipt Date: 20130827
  Transmission Date: 20140515
  Serious: Yes (Other)
  Sender: FDA-Public Use
  Company Number: GER/UKI/13/0034210

PATIENT
  Age: 78 Year
  Sex: Male
  Weight: 82.55 kg

DRUGS (14)
  1. FEXOFENADINE [Suspect]
     Indication: PRODUCT USED FOR UNKNOWN INDICATION
  2. ALLOPURINOL [Concomitant]
  3. CALCICHEW D3 (LEKOVIT CA) [Concomitant]
  4. CETIRIZINE (CETIRIZINE) [Concomitant]
  5. CO-AMOXICLAV (AUGMENTIN / 00756801) [Concomitant]
  6. COLCHICINE (COLCHICINE) [Concomitant]
  7. DIGOXIN (DIGOXIN) [Concomitant]
  8. DOXYCYCLINE (DOXYCYCLINE) [Concomitant]
  9. FUROSEMIDE (FUROSEMIDE) [Concomitant]
  10. PREDNISOLONE (PREDNISOLONE) [Concomitant]
  11. PROSTAP (LEUPRORELIN ACETATE) [Concomitant]
  12. SPIRONOLACTONE (SPIRONOLACTONE) [Concomitant]
  13. TIOTROPIUM (TIOTROPIUM) [Concomitant]
  14. VENTOLIN (SALBUTAMOL) [Concomitant]

REACTIONS (2)
  - Aggression [None]
  - Mood altered [None]
